FAERS Safety Report 23837930 (Version 1)
Quarter: 2024Q2

REPORT INFORMATION
  Report Type: Report from Study
  Country: A1 (occurrence: US)
  Receive Date: 20240509
  Receipt Date: 20240509
  Transmission Date: 20240716
  Serious: Yes (Death)
  Sender: FDA-Public Use
  Company Number: US-Amphastar Pharmaceuticals, Inc.-2156763

PATIENT
  Age: 65 Year
  Sex: Male

DRUGS (2)
  1. BAQSIMI [Suspect]
     Active Substance: GLUCAGON
  2. HUMALOG [Suspect]
     Active Substance: INSULIN LISPRO

REACTIONS (1)
  - Death [Fatal]

NARRATIVE: CASE EVENT DATE: 20240320
